FAERS Safety Report 24345497 (Version 1)
Quarter: 2024Q3

REPORT INFORMATION
  Report Type: Spontaneous
  Country: SG (occurrence: SG)
  Receive Date: 20240920
  Receipt Date: 20240920
  Transmission Date: 20241016
  Serious: Yes (Other)
  Sender: MYLAN
  Company Number: SG-MYLANLABS-2024M1085531

PATIENT
  Age: 61 Year
  Sex: Male

DRUGS (1)
  1. AMLODIPINE [Suspect]
     Active Substance: AMLODIPINE BESYLATE
     Indication: Product used for unknown indication
     Dosage: UNK
     Route: 065

REACTIONS (2)
  - Periorbital oedema [Unknown]
  - Rash [Unknown]

NARRATIVE: CASE EVENT DATE: 20240910
